FAERS Safety Report 4346558-2 (Version None)
Quarter: 2004Q2

REPORT INFORMATION
  Report Type: 
  Country: None (occurrence: None)
  Receive Date: 20040426
  Receipt Date: 20040130
  Transmission Date: 20050107
  Serious: No
  Sender: FDA-Public Use
  Company Number: US-BRISTOL-MYERS SQUIBB COMPANY-12492922

PATIENT
  Age: 57 Year
  Sex: Male
  Weight: 77 kg

DRUGS (5)
  1. PARAPLATIN [Suspect]
     Indication: BASAL CELL CARCINOMA
     Route: 042
     Dates: start: 20040128, end: 20040128
  2. DIPHENHYDRAMINE HCL [Concomitant]
     Route: 042
  3. DEXAMETHASONE [Concomitant]
     Route: 048
  4. ZOFRAN [Concomitant]
     Route: 042
  5. FAMOTIDINE [Concomitant]
     Route: 042

REACTIONS (2)
  - ERYTHEMA [None]
  - PRURITUS [None]
